FAERS Safety Report 9639192 (Version 1)
Quarter: 2013Q4

REPORT INFORMATION
  Report Type: Report from Study
  Country: US (occurrence: US)
  Receive Date: 20131022
  Receipt Date: 20131022
  Transmission Date: 20140711
  Serious: Yes (Other)
  Sender: FDA-Public Use
  Company Number: US-ROCHE-1289040

PATIENT
  Sex: Female

DRUGS (4)
  1. HERCEPTIN [Suspect]
     Indication: BREAST CANCER
     Route: 065
  2. PERJETA [Suspect]
     Indication: BREAST CANCER
     Route: 065
  3. AVASTIN [Suspect]
     Indication: BREAST CANCER
     Route: 042
  4. ABRAXANE [Concomitant]
     Indication: BREAST CANCER
     Route: 042

REACTIONS (1)
  - Cardiac disorder [Recovered/Resolved]
